FAERS Safety Report 6527654-8 (Version None)
Quarter: 2010Q1

REPORT INFORMATION
  Report Type: 
  Country: None (occurrence: None)
  Receive Date: 20100105
  Receipt Date: 20091204
  Transmission Date: 20100710
  Serious: Yes (Other)
  Sender: FDA-Public Use
  Company Number: PHHY2009JP53923

PATIENT
  Sex: Female

DRUGS (1)
  1. NEORAL [Suspect]
     Indication: PUSTULAR PSORIASIS
     Dosage: 50 MG IN THE MORNING AND 25 MG IN THE EVENING
     Route: 048

REACTIONS (8)
  - EAR PAIN [None]
  - ECZEMA [None]
  - EPISTAXIS [None]
  - HEADACHE [None]
  - LUMBAR VERTEBRAL FRACTURE [None]
  - OEDEMA [None]
  - PYREXIA [None]
  - TREMOR [None]
